FAERS Safety Report 8835103 (Version 1)
Quarter: 2012Q4

REPORT INFORMATION
  Report Type: Spontaneous
  Country: None (occurrence: None)
  Receive Date: 20121009
  Receipt Date: 20121009
  Transmission Date: 20130627
  Serious: Yes (Life-Threatening, Hospitalization, Disabling, Other)
  Sender: FDA-Public Use
  Company Number: AUR-APL-2012-04267

PATIENT
  Age: 36 Year
  Sex: Female
  Weight: 67 kg

DRUGS (1)
  1. CITALOPRAM (CITALOPRAM) [Suspect]
     Indication: ANTIDEPRESSANT THERAPY
     Route: 048
     Dates: start: 20080510, end: 20110403

REACTIONS (7)
  - Myoclonus [None]
  - Psychotic disorder [None]
  - Alcoholism [None]
  - Suicide attempt [None]
  - Bipolar disorder [None]
  - Family stress [None]
  - Apparent life threatening event [None]
